FAERS Safety Report 24150368 (Version 1)
Quarter: 2024Q3

REPORT INFORMATION
  Report Type: Report from Study
  Country: US (occurrence: US)
  Receive Date: 20240730
  Receipt Date: 20240730
  Transmission Date: 20241017
  Serious: Yes (Other)
  Sender: ABBVIE
  Company Number: US-ABBVIE-5855719

PATIENT
  Sex: Female

DRUGS (1)
  1. DEPAKOTE ER [Suspect]
     Active Substance: DIVALPROEX SODIUM
     Indication: Product used for unknown indication
     Dosage: DEPAKOTE ER 500 TWO AT BEDTIME EACH DAY
     Route: 048

REACTIONS (4)
  - Brain operation [Unknown]
  - Confusional state [Unknown]
  - Bipolar disorder [Unknown]
  - Depression [Unknown]

NARRATIVE: CASE EVENT DATE: 20220101
